FAERS Safety Report 6437250-9 (Version None)
Quarter: 2009Q4

REPORT INFORMATION
  Report Type: 
  Country: None (occurrence: None)
  Receive Date: 20091112
  Receipt Date: 20091102
  Transmission Date: 20100525
  Serious: Yes (Hospitalization)
  Sender: FDA-Public Use
  Company Number: IS-ROCHE-665965

PATIENT
  Age: 55 Year
  Sex: Male

DRUGS (4)
  1. TAMIFLU [Suspect]
     Route: 065
     Dates: start: 20091012, end: 20091019
  2. SUTENT [Suspect]
     Indication: DRUG USE FOR UNKNOWN INDICATION
     Route: 065
     Dates: start: 20090901, end: 20091019
  3. AMOXICILLIN [Concomitant]
  4. AMOXICILLIN [Concomitant]
     Dates: start: 20091012

REACTIONS (1)
  - THROMBOCYTOPENIA [None]
